FAERS Safety Report 24935359 (Version 1)
Quarter: 2025Q1

REPORT INFORMATION
  Report Type: Spontaneous
  Country: AT (occurrence: AT)
  Receive Date: 20250206
  Receipt Date: 20250206
  Transmission Date: 20250408
  Serious: Yes (Hospitalization)
  Sender: MACLEODS
  Company Number: AT-MLMSERVICE-20250120-PI367363-00106-1

PATIENT

DRUGS (1)
  1. CLOPIDOGREL [Suspect]
     Active Substance: CLOPIDOGREL BISULFATE
     Indication: Antiplatelet therapy
     Route: 048
     Dates: end: 2022

REACTIONS (2)
  - Subdural haematoma [Recovered/Resolved]
  - Cerebral mass effect [Recovered/Resolved]

NARRATIVE: CASE EVENT DATE: 20220101
